FAERS Safety Report 12968974 (Version 13)
Quarter: 2024Q3

REPORT INFORMATION
  Report Type: Spontaneous
  Country: US (occurrence: US)
  Receive Date: 20161123
  Receipt Date: 20240808
  Transmission Date: 20241017
  Serious: No
  Sender: PFIZER
  Company Number: US-PFIZER INC-2016545465

PATIENT
  Age: 72 Year
  Sex: Female
  Weight: 56.689 kg

DRUGS (3)
  1. PREMARIN [Suspect]
     Active Substance: ESTROGENS, CONJUGATED
     Indication: Vulvovaginal dryness
     Dosage: 1.25 MG, 1X/DAY
     Route: 048
  2. PREMARIN [Suspect]
     Active Substance: ESTROGENS, CONJUGATED
     Indication: Vulvovaginal pruritus
     Dosage: 1.25 MG, 1X/DAY
     Route: 048
  3. PREMARIN [Suspect]
     Active Substance: ESTROGENS, CONJUGATED
     Indication: Hot flush

REACTIONS (5)
  - Nasopharyngitis [Unknown]
  - Rhinorrhoea [Recovered/Resolved]
  - Therapeutic response unexpected [Not Recovered/Not Resolved]
  - Tooth extraction [Unknown]
  - Musculoskeletal stiffness [Unknown]
